FAERS Safety Report 5700943-2 (Version None)
Quarter: 2008Q2

REPORT INFORMATION
  Report Type: 
  Country: None (occurrence: None)
  Receive Date: 20080410
  Receipt Date: 20080408
  Transmission Date: 20081010
  Serious: Yes (Other)
  Sender: FDA-Public Use
  Company Number: B0515869A

PATIENT
  Age: 69 Year
  Sex: Female
  Weight: 62 kg

DRUGS (2)
  1. LAPATINIB [Suspect]
     Route: 048
  2. CAPECITABINE [Suspect]
     Route: 048

REACTIONS (3)
  - HAEMANGIOMA [None]
  - HEPATIC CYST [None]
  - HYPERBILIRUBINAEMIA [None]
